FAERS Safety Report 19268394 (Version 1)
Quarter: 2021Q2

REPORT INFORMATION
  Report Type: Spontaneous
  Country: US (occurrence: US)
  Receive Date: 20210517
  Receipt Date: 20210517
  Transmission Date: 20210717
  Serious: No
  Sender: FDA-Public Use
  Company Number: None

PATIENT
  Age: 66 Year
  Sex: Female
  Weight: 81.65 kg

DRUGS (23)
  1. RECLAST [Suspect]
     Active Substance: ZOLEDRONIC ACID
     Indication: OSTEOPOROSIS
     Dates: start: 20200203
  2. OMEGA 3 KRILL OIL [Concomitant]
  3. ADULT LOW DOSE ASPIRIN [Concomitant]
     Active Substance: ASPIRIN
  4. TURMERC CURCUMIN WITH GINGER POWDER [Concomitant]
  5. RECLAST [Suspect]
     Active Substance: ZOLEDRONIC ACID
     Indication: WRIST FRACTURE
     Dates: start: 20200203
  6. COENZYME Q10 [Concomitant]
     Active Substance: DIETARY SUPPLEMENT\UBIDECARENONE
  7. E [Concomitant]
  8. GLUCOSAMINE SULFATE CHONDROITIN [Concomitant]
  9. RECLAST [Suspect]
     Active Substance: ZOLEDRONIC ACID
     Indication: FALL
     Dates: start: 20200203
  10. ACIDOPHILUS [Concomitant]
     Active Substance: LACTOBACILLUS ACIDOPHILUS
  11. MULTIVITAMIN WOMEN 50+ [Concomitant]
  12. POTASSIUM [Concomitant]
     Active Substance: POTASSIUM
  13. VITAMIN D3 [Concomitant]
     Active Substance: CHOLECALCIFEROL
  14. GINKGO BILOBA [Concomitant]
     Active Substance: GINKGO
  15. C WITH ROSE HIPS [Concomitant]
  16. TIMOLOL MALEATE 0.5% [Concomitant]
     Active Substance: TIMOLOL MALEATE
  17. RED YEAST RICE [Concomitant]
     Active Substance: DIETARY SUPPLEMENT
  18. CINNAMON. [Concomitant]
     Active Substance: CINNAMON
  19. VISION FORMULA 50+ [Concomitant]
  20. IRON 65 FERROUS SULFATE [Concomitant]
  21. MAGNESIUM [Concomitant]
     Active Substance: MAGNESIUM
  22. GARLIC. [Concomitant]
     Active Substance: GARLIC
  23. NAPROXEN SODIUM. [Concomitant]
     Active Substance: NAPROXEN SODIUM

REACTIONS (2)
  - Insurance issue [None]
  - Hypoaesthesia [None]

NARRATIVE: CASE EVENT DATE: 202102
